FAERS Safety Report 14688809 (Version 1)
Quarter: 2018Q1

REPORT INFORMATION
  Report Type: Spontaneous
  Country: FR (occurrence: FR)
  Receive Date: 20180328
  Receipt Date: 20180328
  Transmission Date: 20180509
  Serious: Yes (Hospitalization)
  Sender: FDA-Public Use
  Company Number: FR-TEVA-2018-FR-871614

PATIENT
  Age: 90 Year
  Sex: Female
  Weight: 41 kg

DRUGS (8)
  1. DAFALGAN 1 G, TABLET BREACKABLE [Concomitant]
     Indication: PAIN
     Route: 048
  2. LASILIX [Concomitant]
     Active Substance: FUROSEMIDE
     Dosage: 250MG 1X / DAY AND 40MG 2X / DAY
     Route: 048
  3. DELURSAN 250 MG, COATED TABLET [Concomitant]
     Indication: PRIMARY BILIARY CHOLANGITIS
     Route: 048
  4. AMOXICILLIN. [Suspect]
     Active Substance: AMOXICILLIN
     Indication: ERYSIPELAS
     Route: 048
     Dates: start: 20171215, end: 20171221
  5. ALDACTONE [Concomitant]
     Active Substance: SPIRONOLACTONE
     Indication: CARDIAC FAILURE
     Dosage: 25MG 1X / DAY AND 50MG 1X / DAY
     Route: 048
  6. EUPANTOL 20 MG, GASTRO-RESISTANT TABLET [Concomitant]
     Indication: GASTROOESOPHAGEAL REFLUX DISEASE
     Route: 048
  7. DIFFU K, CAPSULE [Concomitant]
     Active Substance: POTASSIUM CHLORIDE
     Indication: HYPOKALAEMIA
     Route: 048
  8. FORLAX [Concomitant]
     Active Substance: POLYETHYLENE GLYCOL 4000
     Indication: CONSTIPATION
     Route: 048

REACTIONS (1)
  - Jaundice [Recovering/Resolving]

NARRATIVE: CASE EVENT DATE: 20171222
